FAERS Safety Report 5472155-1 (Version None)
Quarter: 2007Q3

REPORT INFORMATION
  Report Type: 
  Country: None (occurrence: None)
  Receive Date: 20070925
  Receipt Date: 20070910
  Transmission Date: 20080115
  Serious: Yes (Hospitalization)
  Sender: FDA-Public Use
  Company Number: 2007SP003139

PATIENT
  Age: 72 Year
  Sex: Male

DRUGS (13)
  1. XOPENEX [Suspect]
     Indication: CHRONIC OBSTRUCTIVE PULMONARY DISEASE
     Dosage: 1.25 MG/3ML; INHALATION; 1.25 PRN; INHALATION; 0.63 QID, INHALATION
     Route: 055
     Dates: start: 20070801, end: 20070801
  2. XOPENEX [Suspect]
     Indication: CHRONIC OBSTRUCTIVE PULMONARY DISEASE
     Dosage: 1.25 MG/3ML; INHALATION; 1.25 PRN; INHALATION; 0.63 QID, INHALATION
     Route: 055
     Dates: start: 20070801
  3. PREDNISONE [Concomitant]
  4. TAMSULOSIN HCL [Concomitant]
  5. HYDROCHLORIDE [Concomitant]
  6. ALPRAZOLAM [Concomitant]
  7. FORMOTEROL FUMARATE [Concomitant]
  8. BROVANA [Concomitant]
  9. ALBUTEROL W/IPRATROPIUM [Concomitant]
  10. DILTIAZEM [Concomitant]
  11. M.V.I. [Concomitant]
  12. PNEUMOVAX 23 [Concomitant]
  13. INFLUENZA VACCINE [Concomitant]

REACTIONS (8)
  - CHRONIC OBSTRUCTIVE PULMONARY DISEASE [None]
  - DYSPNOEA [None]
  - OXYGEN SATURATION DECREASED [None]
  - RALES [None]
  - RESPIRATORY DISORDER [None]
  - RESPIRATORY FUME INHALATION DISORDER [None]
  - WHEEZING [None]
  - WHITE BLOOD CELL COUNT INCREASED [None]
